FAERS Safety Report 5787685-2 (Version None)
Quarter: 2008Q2

REPORT INFORMATION
  Report Type: 
  Country: None (occurrence: None)
  Receive Date: 20080625
  Receipt Date: 20071005
  Transmission Date: 20081010
  Serious: No
  Sender: FDA-Public Use
  Company Number: US-ASTRAZENECA-2007UW23253

PATIENT
  Age: 61 Year
  Sex: Male

DRUGS (1)
  1. PULMICORT RESPULES [Suspect]
     Indication: CHRONIC OBSTRUCTIVE PULMONARY DISEASE
     Dosage: 5 MG/2 ML IN MORNING AND PM
     Route: 055
     Dates: start: 20070601

REACTIONS (1)
  - PHARYNGOLARYNGEAL PAIN [None]
